FAERS Safety Report 10989830 (Version 2)
Quarter: 2015Q2

REPORT INFORMATION
  Report Type: Report from Study
  Country: CA (occurrence: CA)
  Receive Date: 20150406
  Receipt Date: 20150604
  Transmission Date: 20150821
  Serious: Yes (Other)
  Sender: FDA-Public Use
  Company Number: CA-JNJFOC-20150400917

PATIENT
  Age: 58 Year
  Sex: Male
  Weight: 88.5 kg

DRUGS (1)
  1. REMICADE [Suspect]
     Active Substance: INFLIXIMAB
     Indication: COLITIS ULCERATIVE
     Route: 042
     Dates: start: 20140526

REACTIONS (2)
  - Bladder neoplasm [Unknown]
  - Stent placement [Unknown]

NARRATIVE: CASE EVENT DATE: 201505
